FAERS Safety Report 4300534-4 (Version None)
Quarter: 2004Q1

REPORT INFORMATION
  Report Type: 
  Country: None (occurrence: None)
  Receive Date: 20040218
  Receipt Date: 20040202
  Transmission Date: 20041129
  Serious: Yes (Death, Other)
  Sender: FDA-Public Use
  Company Number: USA040258116

PATIENT
  Age: 84 Year
  Sex: Female

DRUGS (2)
  1. FORTEO [Suspect]
     Indication: BONE DENSITY DECREASED
     Dates: start: 20030306
  2. PREDNISONE [Concomitant]

REACTIONS (7)
  - ABDOMINAL MASS [None]
  - FALL [None]
  - HEAD INJURY [None]
  - IMMUNE SYSTEM DISORDER [None]
  - NEOPLASM MALIGNANT [None]
  - PHARMACEUTICAL PRODUCT COMPLAINT [None]
  - TEMPORAL ARTERITIS [None]
